FAERS Safety Report 7913915-4 (Version None)
Quarter: 2011Q4

REPORT INFORMATION
  Report Type: 
  Country: None (occurrence: None)
  Receive Date: 20111115
  Receipt Date: 20111107
  Transmission Date: 20120403
  Serious: Yes (Other)
  Sender: FDA-Public Use
  Company Number: US-PFIZER INC-2011272565

PATIENT
  Sex: Male
  Weight: 133 kg

DRUGS (6)
  1. CLINDAMYCIN HYDROCHLORIDE [Concomitant]
  2. HYDROCHLOROTHIAZIDE [Concomitant]
     Indication: HYPERTENSION
     Dosage: UNK
  3. PREDNISONE [Concomitant]
  4. CELEBREX [Suspect]
     Indication: MUSCULOSKELETAL STIFFNESS
  5. CELEBREX [Suspect]
     Indication: RHEUMATOID ARTHRITIS
     Dosage: 200 MG, DAILY
     Route: 048
     Dates: start: 20111101, end: 20111101
  6. METRONIDAZOLE [Concomitant]

REACTIONS (3)
  - CONSTIPATION [None]
  - DIARRHOEA [None]
  - CLOSTRIDIAL INFECTION [None]
